FAERS Safety Report 4430685-5 (Version None)
Quarter: 2004Q3

REPORT INFORMATION
  Report Type: 
  Country: None (occurrence: None)
  Receive Date: 20040721
  Receipt Date: 20040316
  Transmission Date: 20050211
  Serious: Yes (Other)
  Sender: FDA-Public Use
  Company Number: WAES 0403USA01457

PATIENT
  Age: 72 Year
  Sex: Male

DRUGS (3)
  1. VIOXX [Suspect]
     Dosage: PO
     Route: 048
  2. COUMADIN [Concomitant]
  3. FUROSEMIDE [Concomitant]

REACTIONS (1)
  - RENAL FAILURE [None]
